FAERS Safety Report 20228212 (Version 1)
Quarter: 2021Q4

REPORT INFORMATION
  Report Type: Spontaneous
  Country: ID (occurrence: ID)
  Receive Date: 20211224
  Receipt Date: 20211224
  Transmission Date: 20220303
  Serious: Yes (Death)
  Sender: FDA-Public Use
  Company Number: ID-SA-SAC20211224000428

PATIENT
  Age: 43 Year
  Sex: Male

DRUGS (14)
  1. APIDRA [Suspect]
     Active Substance: INSULIN GLULISINE
     Dosage: 13 IU, TID
  2. LANTUS [Concomitant]
     Active Substance: INSULIN GLARGINE
     Dosage: 10 IU
  3. METHYLPREDNISOLONE [Concomitant]
     Active Substance: METHYLPREDNISOLONE
     Dosage: UNK
  4. PIRACETAM [Concomitant]
     Active Substance: PIRACETAM
     Dosage: UNK
  5. RANTIN [Concomitant]
     Dosage: UNK
  6. METHYLCOBALAMIN [Concomitant]
     Active Substance: METHYLCOBALAMIN
     Dosage: UNK
  7. CEFTRIAXONE [Concomitant]
     Active Substance: CEFTRIAXONE
     Dosage: UNK
  8. TRANSAMIN [Concomitant]
     Active Substance: TRANEXAMIC ACID
     Dosage: UNK
  9. METRONIDAZOLE [Concomitant]
     Active Substance: METRONIDAZOLE
     Dosage: UNK
  10. VITAMIN K [Concomitant]
     Active Substance: PHYTONADIONE
     Dosage: UNK
  11. CITICOLIN [Concomitant]
  12. MANNITOL [Concomitant]
     Active Substance: MANNITOL
     Dosage: UNK
  13. ASERING [Concomitant]
     Dosage: UNK
  14. DEXTROSE [Concomitant]
     Active Substance: DEXTROSE
     Dosage: UNK

REACTIONS (1)
  - Blood glucose fluctuation [Fatal]
